FAERS Safety Report 20554620 (Version 3)
Quarter: 2022Q3

REPORT INFORMATION
  Report Type: Report from Study
  Country: DK (occurrence: DK)
  Receive Date: 20220304
  Receipt Date: 20220628
  Transmission Date: 20221026
  Serious: Yes (Other)
  Sender: FDA-Public Use
  Company Number: DK-NOVARTISPH-NVSC2022DK046045

PATIENT
  Age: 2 Year
  Sex: Male

DRUGS (5)
  1. ALPELISIB [Suspect]
     Active Substance: ALPELISIB
     Indication: PIK3CA related overgrowth spectrum
     Dosage: 25 MG, QD (50 MG TABLET IS DIVIDED TO GIVE THE PATIENT 25 MG DOSE)
     Route: 065
  2. ALPELISIB [Suspect]
     Active Substance: ALPELISIB
     Dosage: 0.5 DOSAGE FORM, QD (25 MG) (HALF TABLET DAILY)
     Route: 065
  3. ALPELISIB [Suspect]
     Active Substance: ALPELISIB
     Dosage: 50 MG (EVERY MORNING)
     Route: 065
  4. ALPELISIB [Suspect]
     Active Substance: ALPELISIB
     Dosage: UNK (INITIAL DOSE WITH DIVIDED 50 MG TABLETS 1 HALF EACH DAY)
     Route: 065
     Dates: start: 20200831
  5. ALPELISIB [Suspect]
     Active Substance: ALPELISIB
     Dosage: 50 MG
     Route: 065
     Dates: start: 20211111

REACTIONS (4)
  - Growth failure [Not Recovered/Not Resolved]
  - Off label use [Unknown]
  - Product use complaint [Unknown]
  - Wrong technique in product usage process [Unknown]

NARRATIVE: CASE EVENT DATE: 20220223
